FAERS Safety Report 14554854 (Version 1)
Quarter: 2018Q1

REPORT INFORMATION
  Report Type: Spontaneous
  Country: US (occurrence: US)
  Receive Date: 20180220
  Receipt Date: 20180220
  Transmission Date: 20180509
  Serious: Yes (Other)
  Sender: FDA-Public Use
  Company Number: US-ELI_LILLY_AND_COMPANY-US201802006154

PATIENT
  Sex: Male

DRUGS (2)
  1. IBUPROFEN. [Concomitant]
     Active Substance: IBUPROFEN
     Dosage: UNK, TID
     Route: 065
  2. PROZAC [Suspect]
     Active Substance: FLUOXETINE HYDROCHLORIDE
     Indication: DEPRESSION
     Dosage: 3 DF, DAILY (EVERY MORNING)
     Route: 065

REACTIONS (8)
  - Myocardial infarction [Unknown]
  - Hypertension [Unknown]
  - Memory impairment [Unknown]
  - Chest pain [Unknown]
  - Erectile dysfunction [Unknown]
  - Rash [Unknown]
  - Hepatic steatosis [Unknown]
  - Nervousness [Unknown]

NARRATIVE: CASE EVENT DATE: 1995
